FAERS Safety Report 12994103 (Version 1)
Quarter: 2016Q4

REPORT INFORMATION
  Report Type: Spontaneous
  Country: US (occurrence: US)
  Receive Date: 20161202
  Receipt Date: 20161202
  Transmission Date: 20170207
  Serious: Yes (Life-Threatening, Other)
  Sender: FDA-Public Use
  Company Number: None

PATIENT
  Age: 24 Year
  Sex: Male
  Weight: 78.4 kg

DRUGS (2)
  1. PEPTIDE EASTER [Concomitant]
     Active Substance: GLYCERIN
  2. ALDESLEUKIN [Suspect]
     Active Substance: ALDESLEUKIN
     Indication: METASTATIC MALIGNANT MELANOMA

REACTIONS (9)
  - Rash maculo-papular [None]
  - Cytokine release syndrome [None]
  - Tachycardia [None]
  - Lethargy [None]
  - Confusional state [None]
  - Diastolic hypotension [None]
  - Autoimmune hepatitis [None]
  - Hepatotoxicity [None]
  - Drug-induced liver injury [None]

NARRATIVE: CASE EVENT DATE: 20161109
